FAERS Safety Report 8904897 (Version 3)
Quarter: 2012Q4

REPORT INFORMATION
  Report Type: 
  Country: AU (occurrence: AU)
  Receive Date: 20121113
  Receipt Date: 20121218
  Transmission Date: 20130627
  Serious: Yes (Other)
  Sender: FDA-Public Use
  Company Number: AU-PFIZER INC-2012283198

PATIENT
  Age: 45 Year
  Sex: Female

DRUGS (3)
  1. ZOLOFT [Suspect]
     Indication: PANIC ATTACKS
     Dosage: UNK
     Dates: start: 2011, end: 201211
  2. ZOLOFT [Suspect]
     Indication: POST-TRAUMATIC STRESS DISORDER
  3. VALIUM [Concomitant]
     Dosage: UNK

REACTIONS (5)
  - Suicide attempt [Recovered/Resolved]
  - Intentional self-injury [Recovered/Resolved]
  - Withdrawal syndrome [Recovered/Resolved]
  - Feeling abnormal [Not Recovered/Not Resolved]
  - Emotional disorder [Recovered/Resolved]
